FAERS Safety Report 16600484 (Version 1)
Quarter: 2019Q3

REPORT INFORMATION
  Report Type: Spontaneous
  Country: ES (occurrence: ES)
  Receive Date: 20190719
  Receipt Date: 20190719
  Transmission Date: 20191004
  Serious: Yes (Other)
  Sender: FDA-Public Use
  Company Number: ES-PFIZER INC-2019304386

PATIENT
  Age: 85 Year
  Sex: Female

DRUGS (6)
  1. BESITRAN [Suspect]
     Active Substance: SERTRALINE HYDROCHLORIDE
     Indication: ADJUSTMENT DISORDER
     Dosage: 25 MG, 1X/DAY (FIRST WEEK 1/2 IN THE MORNING)
     Route: 048
     Dates: start: 20190617, end: 20190624
  2. SIMVASTATIN. [Concomitant]
     Active Substance: SIMVASTATIN
     Dosage: UNK
     Route: 048
  3. ALDOCUMAR [Concomitant]
     Active Substance: WARFARIN SODIUM
     Dosage: UNK
     Route: 048
  4. ORFIDAL [Suspect]
     Active Substance: LORAZEPAM
     Indication: ATRIAL FIBRILLATION
     Dosage: 1 MG, 2X/DAY (1 TABLET EVERY 12 HOURS)
     Route: 048
     Dates: start: 20180516
  5. PARACETAMOL [Concomitant]
     Active Substance: ACETAMINOPHEN
     Dosage: UNK
     Route: 048
  6. ACFOL [Concomitant]
     Active Substance: FOLIC ACID
     Dosage: UNK
     Route: 048

REACTIONS (5)
  - Nightmare [Recovering/Resolving]
  - Disorientation [Recovering/Resolving]
  - Product use in unapproved indication [Unknown]
  - Confusional state [Recovering/Resolving]
  - Off label use [Unknown]

NARRATIVE: CASE EVENT DATE: 20180516
